FAERS Safety Report 23475995 (Version 1)
Quarter: 2024Q1

REPORT INFORMATION
  Report Type: Spontaneous
  Country: IT (occurrence: IT)
  Receive Date: 20240204
  Receipt Date: 20240204
  Transmission Date: 20240409
  Serious: Yes (Other)
  Sender: FDA-Public Use
  Company Number: None

PATIENT
  Age: 57 Year
  Sex: Female

DRUGS (1)
  1. CABOMETYX [Suspect]
     Active Substance: CABOZANTINIB S-MALATE
     Indication: Product used for unknown indication
     Dosage: START 60 MG DAILY, SUBSEQUENTLY SUSPENDED, RESUMED AND SUBSEQUENTLY RE-ENTERED WITH A DOSAGE REDUCED
     Route: 048
     Dates: start: 20230609, end: 20231027

REACTIONS (4)
  - Neutropenia [Recovering/Resolving]
  - Weight decreased [Not Recovered/Not Resolved]
  - Dysgeusia [Not Recovered/Not Resolved]
  - Asthenia [Not Recovered/Not Resolved]

NARRATIVE: CASE EVENT DATE: 20230623
